FAERS Safety Report 8509159-8 (Version None)
Quarter: 2012Q3

REPORT INFORMATION
  Report Type: 
  Country: None (occurrence: None)
  Receive Date: 20120713
  Receipt Date: 20120706
  Transmission Date: 20120928
  Serious: Yes (Other)
  Sender: FDA-Public Use
  Company Number: JP-GLAXOSMITHKLINE-B0813940A

PATIENT
  Sex: Female
  Weight: 49 kg

DRUGS (14)
  1. XELODA [Suspect]
     Dosage: 3000MG PER DAY
     Route: 048
     Dates: start: 20101221, end: 20110817
  2. XELODA [Suspect]
     Dosage: 2700MG PER DAY
     Route: 048
     Dates: start: 20110927, end: 20111010
  3. ISOSORBIDE DINITRATE [Concomitant]
     Indication: METASTASES TO CENTRAL NERVOUS SYSTEM
     Route: 048
     Dates: start: 20110823, end: 20110924
  4. XELODA [Suspect]
     Dosage: 2400MG PER DAY
     Route: 048
     Dates: start: 20111018, end: 20111121
  5. LEVOTHYROXINE SODIUM [Concomitant]
     Indication: HYPOTHYROIDISM
     Route: 048
  6. PYDOXAL [Concomitant]
     Indication: PROPHYLAXIS
     Route: 048
     Dates: start: 20101220
  7. DECADRON [Concomitant]
     Indication: METASTASES TO CENTRAL NERVOUS SYSTEM
     Route: 048
     Dates: start: 20110818, end: 20110923
  8. LOCOID [Concomitant]
     Indication: PALMAR-PLANTAR ERYTHRODYSAESTHESIA SYNDROME
     Route: 061
     Dates: start: 20101220
  9. VITAMIN A OINTMENT [Concomitant]
     Indication: PALMAR-PLANTAR ERYTHRODYSAESTHESIA SYNDROME
     Route: 061
     Dates: start: 20101220
  10. TYKERB [Suspect]
     Indication: BREAST CANCER
     Dosage: 1250MG PER DAY
     Route: 048
     Dates: start: 20101221, end: 20110817
  11. XELODA [Suspect]
     Dosage: 1800MG PER DAY
     Route: 048
     Dates: start: 20111129, end: 20111212
  12. CLINDAMYCIN PHOSPHATE [Concomitant]
     Indication: PALMAR-PLANTAR ERYTHRODYSAESTHESIA SYNDROME
     Route: 061
     Dates: start: 20101220
  13. TYKERB [Suspect]
     Dosage: 1250MG PER DAY
     Route: 048
     Dates: start: 20110927, end: 20111218
  14. MYSER [Concomitant]
     Indication: PALMAR-PLANTAR ERYTHRODYSAESTHESIA SYNDROME
     Route: 061
     Dates: start: 20101220

REACTIONS (11)
  - PARONYCHIA [None]
  - PRURITUS [None]
  - STOMATITIS [None]
  - DIARRHOEA [None]
  - DECREASED APPETITE [None]
  - HAEMOPTYSIS [None]
  - RASH [None]
  - HEADACHE [None]
  - PIGMENTATION DISORDER [None]
  - PRODUCTIVE COUGH [None]
  - PALMAR-PLANTAR ERYTHRODYSAESTHESIA SYNDROME [None]
